FAERS Safety Report 22825551 (Version 3)
Quarter: 2023Q4

REPORT INFORMATION
  Report Type: Spontaneous
  Country: US (occurrence: US)
  Receive Date: 20230816
  Receipt Date: 20231016
  Transmission Date: 20240110
  Serious: No
  Sender: FDA-Public Use
  Company Number: US-SANDOZ-SDZ2023US013965

PATIENT
  Sex: Female

DRUGS (3)
  1. CARVEDILOL [Suspect]
     Active Substance: CARVEDILOL
     Indication: Product used for unknown indication
     Dosage: UNK
     Route: 065
  2. ENTRESTO [Suspect]
     Active Substance: SACUBITRIL\VALSARTAN
     Indication: Product used for unknown indication
     Dosage: UNK, BID, (24/26 MGS)
     Route: 048
  3. ENTRESTO [Suspect]
     Active Substance: SACUBITRIL\VALSARTAN
     Dosage: UNK, BID, 49/51 MGS
     Route: 065

REACTIONS (16)
  - Memory impairment [Unknown]
  - Adverse event [Unknown]
  - Brain fog [Unknown]
  - COVID-19 [Unknown]
  - Onychalgia [Unknown]
  - Onychoclasis [Unknown]
  - Hypoaesthesia [Unknown]
  - Productive cough [Unknown]
  - Migraine [Unknown]
  - Arthralgia [Unknown]
  - Headache [Unknown]
  - Dyspnoea [Unknown]
  - Dizziness [Unknown]
  - Fatigue [Unknown]
  - Hypertension [Unknown]
  - Product dose omission issue [Unknown]
